FAERS Safety Report 5452714-2 (Version None)
Quarter: 2007Q3

REPORT INFORMATION
  Report Type: 
  Country: None (occurrence: None)
  Receive Date: 20070914
  Receipt Date: 20070905
  Transmission Date: 20080115
  Serious: Yes (Hospitalization)
  Sender: FDA-Public Use
  Company Number: GB-BAXTER-2007BH003370

PATIENT
  Age: 55 Year
  Sex: Female

DRUGS (1)
  1. TISSUCOL/TISSEEL KIT STIM4 [Suspect]
     Indication: FACE LIFT
     Route: 065
     Dates: start: 20070323, end: 20070323

REACTIONS (3)
  - DRUG INEFFECTIVE [None]
  - HAEMATOMA [None]
  - POST PROCEDURAL COMPLICATION [None]
